FAERS Safety Report 6381962-2 (Version None)
Quarter: 2009Q3

REPORT INFORMATION
  Report Type: 
  Country: None (occurrence: None)
  Receive Date: 20090930
  Receipt Date: 20090922
  Transmission Date: 20100115
  Serious: No
  Sender: FDA-Public Use
  Company Number: AR-ROCHE-658008

PATIENT
  Age: 31 Year
  Sex: Female

DRUGS (1)
  1. ROACCUTANE [Suspect]
     Indication: ACNE
     Route: 048
     Dates: end: 20090601

REACTIONS (2)
  - NO ADVERSE EVENT [None]
  - PREGNANCY [None]
